FAERS Safety Report 8478233-7 (Version None)
Quarter: 2012Q2

REPORT INFORMATION
  Report Type: 
  Country: None (occurrence: None)
  Receive Date: 20120629
  Receipt Date: 20120625
  Transmission Date: 20120825
  Serious: Yes (Other)
  Sender: FDA-Public Use
  Company Number: US-JNJFOC-20120410448

PATIENT
  Sex: Female

DRUGS (3)
  1. MULTI-VITAMINS [Concomitant]
     Indication: PROPHYLAXIS
     Route: 065
  2. TOPAMAX [Suspect]
     Indication: MIGRAINE
     Route: 048
  3. TOPAMAX [Suspect]
     Indication: DEPRESSION
     Route: 048

REACTIONS (5)
  - PRECIPITATE LABOUR [None]
  - DEPRESSION [None]
  - STRESS [None]
  - POSTPARTUM HAEMORRHAGE [None]
  - MATERNAL EXPOSURE DURING PREGNANCY [None]
